FAERS Safety Report 6772693-5 (Version None)
Quarter: 2010Q2

REPORT INFORMATION
  Report Type: 
  Country: None (occurrence: None)
  Receive Date: 20100616
  Receipt Date: 20090429
  Transmission Date: 20101027
  Serious: No
  Sender: FDA-Public Use
  Company Number: US-ASTRAZENECA-2009UW10661

PATIENT
  Age: 62 Year
  Sex: Female
  Weight: 97.5 kg

DRUGS (11)
  1. PULMICORT RESPULES [Suspect]
     Indication: CHRONIC OBSTRUCTIVE PULMONARY DISEASE
     Dosage: 0.5 MG/DL TWO TIMES A DAY
     Route: 055
  2. ALPHAGAN P [Concomitant]
     Indication: EYE DISORDER
  3. TRUSOPT [Concomitant]
     Indication: EYE DISORDER
  4. PRED FORTE [Concomitant]
     Indication: EYE LASER SCAR
  5. METOPROLOL [Concomitant]
     Indication: HYPERTENSION
  6. ENALAPRIL MALEATE [Concomitant]
     Indication: HYPERTENSION
  7. DILTIAZEM [Concomitant]
     Indication: HYPERTENSION
  8. LANTUS [Concomitant]
     Indication: DIABETES MELLITUS
  9. NOVOLIN R [Concomitant]
     Indication: DIABETES MELLITUS
  10. METFORMIN [Concomitant]
     Indication: DIABETES MELLITUS
  11. SIMVASTATIN [Concomitant]
     Indication: BLOOD CHOLESTEROL INCREASED

REACTIONS (1)
  - GLAUCOMA SURGERY [None]
